FAERS Safety Report 6170012-9 (Version None)
Quarter: 2009Q2

REPORT INFORMATION
  Report Type: 
  Country: None (occurrence: None)
  Receive Date: 20090428
  Receipt Date: 20090416
  Transmission Date: 20091009
  Serious: Yes (Hospitalization, Other)
  Sender: FDA-Public Use
  Company Number: US-ELI_LILLY_AND_COMPANY-US200904004284

PATIENT
  Age: 65 Year
  Sex: Female

DRUGS (5)
  1. CYMBALTA [Suspect]
     Indication: MAJOR DEPRESSION
     Dosage: 30 MG, UNK
     Route: 048
  2. CYMBALTA [Suspect]
     Dosage: 120 MG, UNK
     Route: 048
  3. CYMBALTA [Suspect]
     Dosage: 240 MG, UNK
     Route: 048
  4. CYMBALTA [Suspect]
     Dosage: 120 MG, UNK
     Route: 048
  5. ALCOHOL [Concomitant]

REACTIONS (3)
  - BLOOD PRESSURE INCREASED [None]
  - LIVER FUNCTION TEST ABNORMAL [None]
  - OVERDOSE [None]
